FAERS Safety Report 8086170-5 (Version None)
Quarter: 2012Q1

REPORT INFORMATION
  Report Type: 
  Country: None (occurrence: None)
  Receive Date: 20120128
  Receipt Date: 20110426
  Transmission Date: 20120608
  Serious: No
  Sender: FDA-Public Use
  Company Number: US-ABBOTT-11P-163-0721765-00

PATIENT
  Age: 35 Year
  Sex: Female

DRUGS (3)
  1. PREDNISONE TAB [Concomitant]
     Indication: PRODUCT USED FOR UNKNOWN INDICATION
  2. HUMIRA [Suspect]
     Indication: RHEUMATOID ARTHRITIS
     Dates: start: 20110405
  3. NAPROXEN (ALEVE) [Concomitant]
     Indication: PAIN

REACTIONS (3)
  - DRUG DOSE OMISSION [None]
  - ARTHRALGIA [None]
  - JOINT SWELLING [None]
